FAERS Safety Report 18422754 (Version 1)
Quarter: 2020Q4

REPORT INFORMATION
  Report Type: Spontaneous
  Country: US (occurrence: US)
  Receive Date: 20201023
  Receipt Date: 20201023
  Transmission Date: 20210114
  Serious: Yes (Other)
  Sender: FDA-Public Use
  Company Number: US-ELI_LILLY_AND_COMPANY-US202010004962

PATIENT
  Age: 53 Year
  Sex: Female

DRUGS (1)
  1. BASAGLAR [Suspect]
     Active Substance: INSULIN GLARGINE
     Indication: TYPE 1 DIABETES MELLITUS
     Dosage: UNK, UNKNOWN
     Route: 058
     Dates: start: 201902

REACTIONS (6)
  - Fluid retention [Unknown]
  - Abdominal pain upper [Unknown]
  - Limb discomfort [Unknown]
  - Abdominal distension [Unknown]
  - Weight increased [Unknown]
  - Back pain [Unknown]

NARRATIVE: CASE EVENT DATE: 201912
